FAERS Safety Report 13313649 (Version 2)
Quarter: 2017Q1

REPORT INFORMATION
  Report Type: Spontaneous
  Country: CN (occurrence: CN)
  Receive Date: 20170309
  Receipt Date: 20170314
  Transmission Date: 20170428
  Serious: Yes (Life-Threatening, Other)
  Sender: FDA-Public Use
  Company Number: CN-GE HEALTHCARE LIFE SCIENCES-2017CSU000225

PATIENT

DRUGS (3)
  1. OMNISCAN [Suspect]
     Active Substance: GADODIAMIDE
     Indication: CONFUSIONAL STATE
     Dosage: 15 ML, SINGLE
     Route: 042
     Dates: start: 20170302, end: 20170302
  2. OMNISCAN [Suspect]
     Active Substance: GADODIAMIDE
     Indication: LUNG NEOPLASM MALIGNANT
  3. OMNISCAN [Suspect]
     Active Substance: GADODIAMIDE
     Indication: BRAIN CANCER METASTATIC

REACTIONS (3)
  - Eyelid oedema [Recovered/Resolved]
  - Anaphylactic shock [Recovered/Resolved]
  - Laryngeal oedema [Recovered/Resolved]

NARRATIVE: CASE EVENT DATE: 20170302
